FAERS Safety Report 23487619 (Version 1)
Quarter: 2024Q1

REPORT INFORMATION
  Report Type: Spontaneous
  Country: GB (occurrence: GB)
  Receive Date: 20240206
  Receipt Date: 20240206
  Transmission Date: 20240410
  Serious: Yes (Other)
  Sender: FDA-Public Use
  Company Number: GB-SA-2024SA036667

PATIENT
  Age: 14 Year
  Sex: Male

DRUGS (1)
  1. DUPILUMAB [Suspect]
     Active Substance: DUPILUMAB
     Indication: Eczema

REACTIONS (6)
  - Sarcoidosis [Unknown]
  - Skin mass [Unknown]
  - Papule [Unknown]
  - Granuloma [Unknown]
  - Pulmonary mass [Unknown]
  - Liver sarcoidosis [Unknown]
